FAERS Safety Report 7267637-6 (Version None)
Quarter: 2011Q1

REPORT INFORMATION
  Report Type: 
  Country: None (occurrence: None)
  Receive Date: 20110201
  Receipt Date: 20110125
  Transmission Date: 20110831
  Serious: Yes (Hospitalization, Other)
  Sender: FDA-Public Use
  Company Number: JP-ROCHE-714781

PATIENT
  Sex: Female
  Weight: 59 kg

DRUGS (15)
  1. ACTEMRA [Suspect]
     Route: 041
     Dates: start: 20090624, end: 20090624
  2. LOXONIN [Concomitant]
     Route: 048
     Dates: end: 20100521
  3. GLAKAY [Concomitant]
     Route: 048
     Dates: end: 20100601
  4. ACTEMRA [Suspect]
     Route: 041
     Dates: start: 20090327, end: 20090327
  5. ACTEMRA [Suspect]
     Route: 041
     Dates: start: 20090422, end: 20090422
  6. ACTEMRA [Suspect]
     Route: 041
     Dates: start: 20090527, end: 20090527
  7. RHEUMATREX [Suspect]
     Indication: RHEUMATOID ARTHRITIS
     Route: 048
     Dates: end: 20100514
  8. ULGUT [Concomitant]
     Route: 048
     Dates: end: 20100601
  9. ACTEMRA [Suspect]
     Route: 041
     Dates: start: 20090722, end: 20100514
  10. FOLIAMIN [Concomitant]
     Route: 048
     Dates: end: 20100514
  11. MYSLEE [Concomitant]
     Route: 048
     Dates: end: 20100521
  12. ALESION [Concomitant]
     Route: 048
     Dates: start: 20090527, end: 20100521
  13. ACTEMRA [Suspect]
     Indication: RHEUMATOID ARTHRITIS
     Route: 041
     Dates: start: 20090116, end: 20090116
  14. ACTEMRA [Suspect]
     Route: 041
     Dates: start: 20090220, end: 20090220
  15. PROGRAF [Concomitant]
     Route: 048
     Dates: end: 20100521

REACTIONS (3)
  - HEPATIC FUNCTION ABNORMAL [None]
  - PRURITUS [None]
  - INTERSTITIAL LUNG DISEASE [None]
